FAERS Safety Report 16107105 (Version 1)
Quarter: 2019Q1

REPORT INFORMATION
  Report Type: Report from Study
  Country: US (occurrence: US)
  Receive Date: 20190322
  Receipt Date: 20190322
  Transmission Date: 20190418
  Serious: Yes (Hospitalization, Other)
  Sender: FDA-Public Use
  Company Number: US-SHIRE-US201908810

PATIENT
  Age: 54 Year
  Sex: Female

DRUGS (1)
  1. GATTEX [Suspect]
     Active Substance: TEDUGLUTIDE\WATER
     Indication: SHORT-BOWEL SYNDROME
     Dosage: 2.109 MILLIGRAM, 1X/DAY:QD
     Route: 058
     Dates: start: 20181213

REACTIONS (3)
  - Intestinal obstruction [Recovered/Resolved]
  - Anaemia [Unknown]
  - Scar [Unknown]

NARRATIVE: CASE EVENT DATE: 201903
